FAERS Safety Report 5253765-3 (Version None)
Quarter: 2007Q1

REPORT INFORMATION
  Report Type: 
  Country: None (occurrence: None)
  Receive Date: 20070227
  Receipt Date: 20070221
  Transmission Date: 20070707
  Serious: Yes (Death, Hospitalization)
  Sender: FDA-Public Use
  Company Number: 163-20785-07010719

PATIENT
  Age: 76 Year
  Sex: Female

DRUGS (12)
  1. THALOMID [Suspect]
     Indication: MULTIPLE MYELOMA
     Dosage: 100 MG, 1 IN 1 D, ORAL
     Route: 048
     Dates: start: 20061218, end: 20070102
  2. DEXAMETHASONE TAB [Suspect]
     Indication: MULTIPLE MYELOMA
     Dosage: SEE IMAGE
     Route: 048
     Dates: start: 20061218, end: 20070102
  3. LISINOPRIL [Concomitant]
  4. SIMVASTATIN [Concomitant]
  5. TOPROL-XL [Concomitant]
  6. HYDROCHLOROTHIAZIDE [Concomitant]
  7. REQUIP [Concomitant]
  8. TRAMADOL/APAP (TRAMADOL) [Concomitant]
  9. LORAZEPAM [Concomitant]
  10. ACIPHEX [Concomitant]
  11. OXYCODONE HCL [Concomitant]
  12. FLEXERIL [Concomitant]

REACTIONS (11)
  - ACTIVATED PARTIAL THROMBOPLASTIN TIME PROLONGED [None]
  - HYPOTENSION [None]
  - IMPAIRED HEALING [None]
  - INFECTION [None]
  - INTESTINAL ISCHAEMIA [None]
  - MENTAL STATUS CHANGES [None]
  - PERITONITIS [None]
  - RESPIRATORY DISTRESS [None]
  - SEPSIS [None]
  - SPLENIC VEIN THROMBOSIS [None]
  - TACHYCARDIA [None]
